FAERS Safety Report 20747740 (Version 1)
Quarter: 2022Q2

REPORT INFORMATION
  Report Type: Spontaneous
  Country: US (occurrence: US)
  Receive Date: 20220425
  Receipt Date: 20220425
  Transmission Date: 20220721
  Serious: No
  Sender: FDA-Public Use
  Company Number: US-SA-SAC20220420000500

PATIENT
  Sex: Female

DRUGS (3)
  1. AUBAGIO [Suspect]
     Active Substance: TERIFLUNOMIDE
     Indication: Multiple sclerosis
     Dosage: 14 MG, QD
     Route: 048
     Dates: start: 202004, end: 202203
  2. BIOTIN [Concomitant]
     Active Substance: BIOTIN
  3. CALCIUM [Concomitant]
     Active Substance: CALCIUM

REACTIONS (4)
  - Muscle spasms [Not Recovered/Not Resolved]
  - Dysphagia [Not Recovered/Not Resolved]
  - Burning sensation [Not Recovered/Not Resolved]
  - Muscle tightness [Not Recovered/Not Resolved]
